FAERS Safety Report 12864438 (Version 1)
Quarter: 2016Q4

REPORT INFORMATION
  Report Type: Spontaneous
  Country: US (occurrence: US)
  Receive Date: 20161020
  Receipt Date: 20161020
  Transmission Date: 20170207
  Serious: No
  Sender: FDA-Public Use
  Company Number: US-009507513-1610USA008784

PATIENT
  Sex: Female

DRUGS (1)
  1. PROSCAR [Suspect]
     Active Substance: FINASTERIDE
     Dosage: WITH TRANSFUSED BLOOD
     Route: 042
     Dates: start: 20161014

REACTIONS (2)
  - Exposure via blood [Unknown]
  - No adverse event [Unknown]

NARRATIVE: CASE EVENT DATE: 20161014
